FAERS Safety Report 4876003-X (Version None)
Quarter: 2005Q4

REPORT INFORMATION
  Report Type: 
  Country: None (occurrence: None)
  Receive Date: 20051206
  Receipt Date: 20051028
  Transmission Date: 20060501
  Serious: No
  Sender: FDA-Public Use
  Company Number: USA0510112070

PATIENT
  Age: 60 Year
  Sex: Female

DRUGS (5)
  1. CYMBALTA [Suspect]
     Indication: NEUROPATHY PERIPHERAL
     Dosage: 30 MG
     Dates: start: 20051026
  2. NORCO [Concomitant]
  3. KLONOPIN [Concomitant]
  4. SOMA [Concomitant]
  5. OXYCONTIN [Concomitant]

REACTIONS (4)
  - CHILLS [None]
  - HEADACHE [None]
  - NAUSEA [None]
  - PARAESTHESIA ORAL [None]
